FAERS Safety Report 4436011-X (Version None)
Quarter: 2004Q3

REPORT INFORMATION
  Report Type: 
  Country: None (occurrence: None)
  Receive Date: 20040826
  Receipt Date: 20040817
  Transmission Date: 20050211
  Serious: Yes (Hospitalization)
  Sender: FDA-Public Use
  Company Number: FABR-10531

PATIENT
  Age: 54 Year
  Sex: Male
  Weight: 73.4827 kg

DRUGS (1)
  1. FABRAZYME [Suspect]
     Indication: FABRY'S DISEASE
     Dates: start: 20030701

REACTIONS (3)
  - CELLULITIS [None]
  - HAEMODIALYSIS [None]
  - TREATMENT NONCOMPLIANCE [None]
